FAERS Safety Report 4418719-5 (Version None)
Quarter: 2004Q3

REPORT INFORMATION
  Report Type: 
  Country: None (occurrence: None)
  Receive Date: 20040809
  Receipt Date: 20031224
  Transmission Date: 20050211
  Serious: Yes (Hospitalization, Other)
  Sender: FDA-Public Use
  Company Number: US-GLAXOSMITHKLINE-A0490760A

PATIENT
  Age: 66 Year
  Sex: Female

DRUGS (3)
  1. PAXIL [Suspect]
     Indication: PANIC DISORDER
     Dosage: 20MG PER DAY
     Route: 048
     Dates: start: 19950101
  2. PRILOSEC [Concomitant]
  3. ZETIA [Concomitant]

REACTIONS (2)
  - HYPERTENSION [None]
  - WEIGHT INCREASED [None]
